FAERS Safety Report 9435913 (Version 1)
Quarter: 2013Q3

REPORT INFORMATION
  Report Type: Spontaneous
  Country: BR (occurrence: BR)
  Receive Date: 20130801
  Receipt Date: 20130801
  Transmission Date: 20140515
  Serious: Yes (Other)
  Sender: FDA-Public Use
  Company Number: BR-LUNDBECK-DKLU1086354

PATIENT
  Age: 25 Year
  Sex: Female

DRUGS (2)
  1. ONFI [Suspect]
     Indication: EPILEPSY
     Route: 048
     Dates: start: 20121002, end: 20121031
  2. GARDENAL [Suspect]
     Indication: EPILEPSY
     Route: 048

REACTIONS (5)
  - Umbilical cord around neck [Recovered/Resolved]
  - Feeling abnormal [Recovering/Resolving]
  - Dysgeusia [Recovering/Resolving]
  - Headache [Recovering/Resolving]
  - Somnolence [Recovering/Resolving]
